FAERS Safety Report 8853484 (Version 1)
Quarter: 2012Q4

REPORT INFORMATION
  Report Type: 
  Country: US (occurrence: US)
  Receive Date: 20121022
  Receipt Date: 20121022
  Transmission Date: 20130627
  Serious: No
  Sender: FDA-Public Use
  Company Number: US-GLAXOSMITHKLINE-A0894253A

PATIENT
  Age: 86 Year
  Sex: Male

DRUGS (8)
  1. JALYN [Suspect]
     Indication: BENIGN PROSTATIC HYPERPLASIA
     Dosage: 1CAP Per day
     Route: 048
     Dates: start: 20101109, end: 20101119
  2. DILTIAZEM [Concomitant]
  3. BABY ASA [Concomitant]
  4. GLUCOSAMINE HYDROCHLORIDE [Concomitant]
  5. MVI [Concomitant]
  6. B-12 [Concomitant]
  7. SIMVASTATIN [Concomitant]
  8. FUROSEMIDE [Concomitant]

REACTIONS (1)
  - Therapeutic response unexpected [Unknown]
